FAERS Safety Report 15550296 (Version 2)
Quarter: 2018Q4

REPORT INFORMATION
  Report Type: Report from Study
  Country: CA (occurrence: CA)
  Receive Date: 20181025
  Receipt Date: 20181029
  Transmission Date: 20190205
  Serious: Yes (Hospitalization, Other)
  Sender: FDA-Public Use
  Company Number: CA-GLAXOSMITHKLINE-CA2018GSK169271

PATIENT
  Sex: Male

DRUGS (2)
  1. MEPOLIZUMAB [Suspect]
     Active Substance: MEPOLIZUMAB
     Indication: ASTHMA
     Dosage: 100 MG, Z MONTHLY
     Route: 042
  2. MEPOLIZUMAB [Suspect]
     Active Substance: MEPOLIZUMAB
     Dosage: 100 MG, Z
     Route: 042

REACTIONS (8)
  - Aortic valve disease [Recovering/Resolving]
  - Pyrexia [Recovered/Resolved]
  - Tachycardia [Unknown]
  - Chills [Unknown]
  - Hospitalisation [Recovering/Resolving]
  - Anxiety [Unknown]
  - Infection [Recovering/Resolving]
  - Bacterial test positive [Recovered/Resolved]
